FAERS Safety Report 11823979 (Version 3)
Quarter: 2016Q1

REPORT INFORMATION
  Report Type: Spontaneous
  Country: JP (occurrence: JP)
  Receive Date: 20151210
  Receipt Date: 20160125
  Transmission Date: 20160525
  Serious: Yes (Life-Threatening, Hospitalization, Other)
  Sender: FDA-Public Use
  Company Number: JP-GLAXOSMITHKLINE-JP2015JPN173251

PATIENT
  Age: 67 Year
  Sex: Female
  Weight: 32 kg

DRUGS (10)
  1. STALEVO [Suspect]
     Active Substance: CARBIDOPA\ENTACAPONE\LEVODOPA
     Indication: PARKINSON^S DISEASE
     Dosage: 250 MG, 1D
     Route: 048
     Dates: start: 20151125
  2. MIRAPEX-LA [Concomitant]
     Dosage: UNK
  3. FP-OD [Concomitant]
     Active Substance: SELEGILINE HYDROCHLORIDE
     Dosage: UNK
  4. SENNOSIDE [Concomitant]
     Active Substance: SENNOSIDES
     Dosage: UNK, PRN
  5. UNKNOWN DRUG [Concomitant]
     Active Substance: UNSPECIFIED INGREDIENT
     Dosage: UNK
  6. DOPS OD [Concomitant]
     Active Substance: DROXIDOPA
     Dosage: UNK
  7. SELTOUCH [Concomitant]
     Active Substance: FELBINAC
     Dosage: UNK
  8. LEVODOPA [Concomitant]
     Active Substance: LEVODOPA
     Dosage: UNK
  9. REQUIP [Suspect]
     Active Substance: ROPINIROLE HYDROCHLORIDE
     Indication: PARKINSON^S DISEASE
     Dosage: 2 MG, BID
     Route: 048
     Dates: start: 20151125, end: 20151202
  10. SYMMETREL [Concomitant]
     Active Substance: AMANTADINE HYDROCHLORIDE
     Dosage: UNK

REACTIONS (2)
  - Toxicity to various agents [Recovering/Resolving]
  - Suicide attempt [Recovering/Resolving]

NARRATIVE: CASE EVENT DATE: 20151202
